FAERS Safety Report 16207268 (Version 1)
Quarter: 2019Q2

REPORT INFORMATION
  Report Type: Report from Study
  Country: BR (occurrence: BR)
  Receive Date: 20190417
  Receipt Date: 20190417
  Transmission Date: 20190711
  Serious: Yes (Death, Hospitalization, Other)
  Sender: FDA-Public Use
  Company Number: BR-UCBSA-2019016247

PATIENT
  Sex: Female
  Weight: 50 kg

DRUGS (1)
  1. CERTOLIZUMAB PEGOL RA [Suspect]
     Active Substance: CERTOLIZUMAB PEGOL
     Indication: RHEUMATOID ARTHRITIS
     Dosage: UNK
     Route: 058
     Dates: start: 201812, end: 201904

REACTIONS (5)
  - Acute respiratory failure [Fatal]
  - Decreased appetite [Fatal]
  - Cachexia [Fatal]
  - Dementia Alzheimer^s type [Fatal]
  - Multiple organ dysfunction syndrome [Fatal]
